FAERS Safety Report 5082656-6 (Version None)
Quarter: 2006Q3

REPORT INFORMATION
  Report Type: 
  Country: None (occurrence: None)
  Receive Date: 20060817
  Receipt Date: 20060809
  Transmission Date: 20061208
  Serious: Yes (Death, Other)
  Sender: FDA-Public Use
  Company Number: PHEH2006US10160

PATIENT
  Sex: Male

DRUGS (1)
  1. ZOMETA [Suspect]
     Indication: PROSTATE CANCER METASTATIC
     Dosage: ^TREATED FOR ABOUT 18 MONTHS^

REACTIONS (4)
  - BONE DEBRIDEMENT [None]
  - BONE DISORDER [None]
  - DEATH [None]
  - OSTEONECROSIS [None]
